FAERS Safety Report 8079402-0 (Version None)
Quarter: 2012Q1

REPORT INFORMATION
  Report Type: 
  Country: None (occurrence: None)
  Receive Date: 20120128
  Receipt Date: 20110823
  Transmission Date: 20120608
  Serious: No
  Sender: FDA-Public Use
  Company Number: US-ABBOTT-11P-163-0848696-00

PATIENT
  Sex: Female
  Weight: 111.23 kg

DRUGS (3)
  1. HUMIRA [Suspect]
     Indication: PSORIATIC ARTHROPATHY
  2. HUMIRA [Suspect]
     Indication: PSORIASIS
  3. DIAZIDE [Concomitant]
     Indication: SWELLING

REACTIONS (2)
  - ARTHRALGIA [None]
  - DRUG EFFECT DECREASED [None]
